FAERS Safety Report 9943597 (Version 2)
Quarter: 2014Q1

REPORT INFORMATION
  Report Type: Report from Study
  Country: US (occurrence: US)
  Receive Date: 20140303
  Receipt Date: 20140303
  Transmission Date: 20141002
  Serious: No
  Sender: FDA-Public Use
  Company Number: US-ABBVIE-12P-163-1022683-00

PATIENT
  Age: 55 Year
  Sex: Female

DRUGS (10)
  1. HUMIRA [Suspect]
     Indication: COLITIS ULCERATIVE
     Dosage: LOADING DOSE
     Route: 058
     Dates: start: 20121204, end: 20121204
  2. HUMIRA [Suspect]
     Dosage: LOADING DOSE
     Route: 058
     Dates: start: 20121223, end: 20121223
  3. HUMIRA [Suspect]
     Route: 058
  4. HUMIRA [Suspect]
     Route: 058
     Dates: start: 20130113
  5. BIOIDENTICAL ESTRADIOL [Concomitant]
     Indication: PRODUCT USED FOR UNKNOWN INDICATION
  6. PROGESTERONE [Concomitant]
     Indication: OESTROGEN REPLACEMENT THERAPY
  7. TESTOSTERONE [Concomitant]
     Indication: OESTROGEN REPLACEMENT THERAPY
     Dosage: SYRINGE TO SHOULDERS IN AM AND BUTTOCKS IN PM
  8. XANAX [Concomitant]
     Indication: ANXIETY
     Dosage: 0.5 - 1 TAB
  9. IBUPROFEN [Concomitant]
     Indication: PAIN
  10. TYLENOL [Concomitant]
     Indication: PRODUCT USED FOR UNKNOWN INDICATION

REACTIONS (11)
  - Pyrexia [Not Recovered/Not Resolved]
  - Nausea [Not Recovered/Not Resolved]
  - Headache [Not Recovered/Not Resolved]
  - Arthralgia [Not Recovered/Not Resolved]
  - Pain in extremity [Not Recovered/Not Resolved]
  - Bronchitis [Not Recovered/Not Resolved]
  - Cough [Not Recovered/Not Resolved]
  - Injection site erythema [Recovering/Resolving]
  - Injection site haemorrhage [Recovering/Resolving]
  - Injection site pain [Unknown]
  - Injection site pain [Unknown]
